FAERS Safety Report 23755095 (Version 1)
Quarter: 2024Q2

REPORT INFORMATION
  Report Type: Spontaneous
  Country: NL (occurrence: NL)
  Receive Date: 20240418
  Receipt Date: 20240418
  Transmission Date: 20240716
  Serious: Yes (Other)
  Sender: FDA-Public Use
  Company Number: None

PATIENT

DRUGS (1)
  1. METOPROLOL SUCCINATE [Suspect]
     Active Substance: METOPROLOL SUCCINATE
     Indication: Heart rate increased
     Dosage: 50 MILLIGRAM, QD
     Route: 048
     Dates: start: 20211220, end: 20240314

REACTIONS (6)
  - Mental impairment [Recovering/Resolving]
  - Brain fog [Recovering/Resolving]
  - Tobacco user [Recovering/Resolving]
  - Lacrimation increased [Recovering/Resolving]
  - Disturbance in attention [Recovering/Resolving]
  - Fatigue [Recovering/Resolving]
